FAERS Safety Report 8943638 (Version 2)
Quarter: 2012Q4

REPORT INFORMATION
  Report Type: 
  Country: JP (occurrence: JP)
  Receive Date: 20121204
  Receipt Date: 20121219
  Transmission Date: 20130627
  Serious: Yes (Other)
  Sender: FDA-Public Use
  Company Number: JP-PFIZER INC-2012302342

PATIENT
  Age: 7 None
  Sex: Male

DRUGS (1)
  1. LYRICA [Suspect]
     Dosage: 75 mg, 1x/day
     Route: 048

REACTIONS (3)
  - Convulsion [Recovered/Resolved]
  - Hypoglycaemia [Unknown]
  - Confusional state [Recovered/Resolved]
